FAERS Safety Report 8016254-9 (Version None)
Quarter: 2011Q4

REPORT INFORMATION
  Report Type: 
  Country: None (occurrence: None)
  Receive Date: 20111230
  Receipt Date: 20111222
  Transmission Date: 20120403
  Serious: Yes (Hospitalization, Other)
  Sender: FDA-Public Use
  Company Number: US-MERCK-1011USA03226

PATIENT
  Age: 65 Year
  Sex: Female

DRUGS (2)
  1. FOSAMAX [Suspect]
     Route: 048
     Dates: start: 19970101
  2. FOSAMAX [Suspect]
     Indication: OSTEOPOROSIS
     Route: 065
     Dates: start: 19970101

REACTIONS (40)
  - EAR DISORDER [None]
  - GASTROOESOPHAGEAL REFLUX DISEASE [None]
  - GASTRITIS [None]
  - MYALGIA [None]
  - BREAST MASS [None]
  - CARDIAC FAILURE CONGESTIVE [None]
  - PNEUMONIA [None]
  - ARTHROPATHY [None]
  - HAEMORRHOIDAL HAEMORRHAGE [None]
  - HYPOKALAEMIA [None]
  - URINARY TRACT INFECTION [None]
  - OSTEOARTHRITIS [None]
  - ANAEMIA [None]
  - HIP FRACTURE [None]
  - HYPOTHYROIDISM [None]
  - IMPAIRED HEALING [None]
  - GASTRIC DISORDER [None]
  - SCIATICA [None]
  - IRON DEFICIENCY ANAEMIA [None]
  - ANXIETY [None]
  - GASTROINTESTINAL DISORDER [None]
  - JOINT SWELLING [None]
  - FEMUR FRACTURE [None]
  - INTESTINAL POLYP [None]
  - TACHYCARDIA [None]
  - BARRETT'S OESOPHAGUS [None]
  - DEPRESSED MOOD [None]
  - SINUS DISORDER [None]
  - POST PROCEDURAL PNEUMONIA [None]
  - DEPRESSION [None]
  - CHEST DISCOMFORT [None]
  - ASTHMA [None]
  - HYPERTENSION [None]
  - VENTRICULAR EXTRASYSTOLES [None]
  - MELANOCYTIC NAEVUS [None]
  - DYSLIPIDAEMIA [None]
  - ARTHRALGIA [None]
  - CARDIAC DISORDER [None]
  - CHEST PAIN [None]
  - CORONARY ARTERY DISEASE [None]
